FAERS Safety Report 5605178-X (Version None)
Quarter: 2008Q1

REPORT INFORMATION
  Report Type: 
  Country: None (occurrence: None)
  Receive Date: 20080123
  Receipt Date: 20080114
  Transmission Date: 20080703
  Serious: Yes (Hospitalization)
  Sender: FDA-Public Use
  Company Number: TPA2008A00069

PATIENT
  Age: 75 Year
  Sex: Female
  Weight: 90.7194 kg

DRUGS (10)
  1. ACTOS [Suspect]
     Indication: DIABETES MELLITUS
     Dosage: 4 MG, 1 IN 1 D, PER ORAL; 30 MG, 1 IN 1 D, PER ORAL; 15 MG, 1 IN 1 D, PER ORAL
     Route: 048
     Dates: end: 20040101
  2. ACTOS [Suspect]
     Indication: DIABETES MELLITUS
     Dosage: 4 MG, 1 IN 1 D, PER ORAL; 30 MG, 1 IN 1 D, PER ORAL; 15 MG, 1 IN 1 D, PER ORAL
     Route: 048
     Dates: end: 20070101
  3. ACTOS [Suspect]
     Indication: DIABETES MELLITUS
     Dosage: 4 MG, 1 IN 1 D, PER ORAL; 30 MG, 1 IN 1 D, PER ORAL; 15 MG, 1 IN 1 D, PER ORAL
     Route: 048
     Dates: start: 20070101
  4. ASPIRIN [Concomitant]
  5. PLAVIX [Concomitant]
  6. ZETIA [Concomitant]
  7. AMARYL (GLIMEPIRIDE) (TABLETS) [Concomitant]
  8. GLUCOPHAGE [Concomitant]
  9. TOPROL (METOPROLOL) (TABLETS) [Concomitant]
  10. SPIRONOLACTONE [Concomitant]

REACTIONS (12)
  - ARTHRALGIA [None]
  - BURSITIS [None]
  - CATARACT [None]
  - CEREBROVASCULAR ACCIDENT [None]
  - CORONARY ARTERIAL STENT INSERTION [None]
  - DIARRHOEA [None]
  - DIZZINESS [None]
  - FALL [None]
  - JOINT SWELLING [None]
  - PAIN [None]
  - STOMACH DISCOMFORT [None]
  - TRANSIENT ISCHAEMIC ATTACK [None]
